FAERS Safety Report 17789606 (Version 1)
Quarter: 2020Q2

REPORT INFORMATION
  Report Type: Spontaneous
  Country: US (occurrence: US)
  Receive Date: 20200514
  Receipt Date: 20200514
  Transmission Date: 20200714
  Serious: No
  Sender: FDA-Public Use
  Company Number: US-AMGEN-USASP2020075717

PATIENT
  Age: 31 Year
  Sex: Female

DRUGS (1)
  1. ARANESP [Suspect]
     Active Substance: DARBEPOETIN ALFA
     Indication: PRODUCT USED FOR UNKNOWN INDICATION
     Dosage: 40 MICROGRAM,40 MCG/0.4 ML
     Route: 065

REACTIONS (2)
  - Product storage error [Unknown]
  - Adverse event [Unknown]

NARRATIVE: CASE EVENT DATE: 202005
